FAERS Safety Report 7417889-4 (Version None)
Quarter: 2011Q2

REPORT INFORMATION
  Report Type: 
  Country: None (occurrence: None)
  Receive Date: 20110415
  Receipt Date: 20101019
  Transmission Date: 20111010
  Serious: Yes (Hospitalization)
  Sender: FDA-Public Use
  Company Number: US-BAYER-201020371NA

PATIENT
  Age: 24 Year
  Sex: Female
  Weight: 82 kg

DRUGS (12)
  1. YAZ [Suspect]
     Indication: PRODUCT USED FOR UNKNOWN INDICATION
     Route: 048
     Dates: start: 20071001, end: 20080301
  2. ATACAND HCT [Concomitant]
  3. YASMIN [Suspect]
     Indication: ACNE
     Dosage: UNK UNK, UNK
     Route: 048
     Dates: start: 20071101, end: 20080301
  4. LISINOPRIL [Concomitant]
     Indication: HYPERTENSION
     Dosage: UNK
     Dates: start: 20050101
  5. IRON [IRON] [Concomitant]
  6. COLACE [Concomitant]
  7. YASMIN [Suspect]
     Indication: DYSFUNCTIONAL UTERINE BLEEDING
  8. DILTIAZEM [Concomitant]
     Indication: HYPERTENSION
     Dosage: UNK
     Dates: start: 20070101
  9. INSULIN [Concomitant]
     Indication: DIABETES MELLITUS
     Dosage: UNK
     Dates: start: 19920101
  10. LASIX + K [Concomitant]
  11. CARDIZEM [Concomitant]
  12. LIPITOR [Concomitant]
     Indication: BLOOD CHOLESTEROL INCREASED
     Dosage: UNK
     Dates: start: 20070101

REACTIONS (1)
  - RENAL FAILURE ACUTE [None]
